FAERS Safety Report 8542394-1 (Version None)
Quarter: 2012Q3

REPORT INFORMATION
  Report Type: 
  Country: None (occurrence: None)
  Receive Date: 20120726
  Receipt Date: 20110913
  Transmission Date: 20120928
  Serious: Yes (Other)
  Sender: FDA-Public Use
  Company Number: US-ASTRAZENECA-2011SE55104

PATIENT
  Age: 77 Year
  Sex: Male

DRUGS (2)
  1. RISPERIDONE [Suspect]
     Route: 065
  2. SEROQUEL [Suspect]
     Route: 048

REACTIONS (2)
  - TREMOR [None]
  - CONVULSION [None]
